FAERS Safety Report 4300113-9 (Version None)
Quarter: 2004Q1

REPORT INFORMATION
  Report Type: 
  Country: None (occurrence: None)
  Receive Date: 20040218
  Receipt Date: 20040203
  Transmission Date: 20041129
  Serious: Yes (Other)
  Sender: FDA-Public Use
  Company Number: JP-JNJFOC-20031202816

PATIENT
  Age: 56 Year
  Sex: Male

DRUGS (12)
  1. FENTANYL [Suspect]
     Indication: CANCER PAIN
     Dosage: 2.5 + 5 MG, 1 IN 3 DAY, TRANSDERMAL
     Route: 062
     Dates: start: 20020530, end: 20020806
  2. FENTANYL [Suspect]
     Indication: CANCER PAIN
     Dosage: 2.5 + 5 MG, 1 IN 3 DAY, TRANSDERMAL
     Route: 062
     Dates: start: 20020806, end: 20020815
  3. FENTANYL [Suspect]
     Indication: CANCER PAIN
     Dosage: 2.5 + 5 MG, 1 IN 3 DAY, TRANSDERMAL
     Route: 062
     Dates: start: 20020815
  4. MORPHINE [Suspect]
     Indication: DRUG USE FOR UNKNOWN INDICATION
  5. TEGAFUR; GIMERACIL;OTERACIL POTASSIUM (ALL OTHER THERAPEUTIC PRODUCTS) [Concomitant]
  6. PROCHLORPERAZINE MALEATE (PROCHLORPERAZINE MALEATE) [Concomitant]
  7. DICLOFENAC SODIUM [Concomitant]
  8. ANTIDIARRHEALS, INTESTINAL REGULATORS (ALL OTHER THERAPEUTIC PRODUCTS) [Concomitant]
  9. MAGNESIUM OXIDE (MAGNESIUM OXIDE) [Concomitant]
  10. TAMSULOSIN HYDROCHLORIDE (TAMSULOSIN HYDROCHLORIDE) [Concomitant]
  11. HALOPERIDOL [Concomitant]
  12. ANTI-METABOLIC (ALL OTHER THERAPEUTIC PRODUCTS) [Concomitant]

REACTIONS (3)
  - CONVULSION [None]
  - DRUG INTERACTION [None]
  - HYPOAESTHESIA [None]
